FAERS Safety Report 20066553 (Version 1)
Quarter: 2021Q4

REPORT INFORMATION
  Report Type: Spontaneous
  Country: FR (occurrence: FR)
  Receive Date: 20211115
  Receipt Date: 20211115
  Transmission Date: 20220303
  Serious: Yes (Congenital Anomaly, Other)
  Sender: FDA-Public Use
  Company Number: FR-ABBVIE-21K-056-4159299-00

PATIENT
  Sex: Male

DRUGS (3)
  1. VALPROATE SODIUM [Suspect]
     Active Substance: VALPROATE SODIUM
     Indication: Maternal exposure timing unspecified
     Route: 064
  2. PHLOROGLUCINOL [Concomitant]
     Active Substance: PHLOROGLUCINOL
     Indication: Product used for unknown indication
  3. FOLIC ACID [Concomitant]
     Active Substance: FOLIC ACID
     Indication: Product used for unknown indication

REACTIONS (33)
  - Phimosis [Unknown]
  - Bronchiolitis [Unknown]
  - Congenital foot malformation [Unknown]
  - Autism spectrum disorder [Unknown]
  - Developmental hip dysplasia [Unknown]
  - Hydrocele [Unknown]
  - Plagiocephaly [Unknown]
  - Strabismus [Unknown]
  - Dysmorphism [Unknown]
  - Cognitive disorder [Unknown]
  - Learning disorder [Unknown]
  - Executive dysfunction [Unknown]
  - Memory impairment [Unknown]
  - Disturbance in attention [Unknown]
  - Elbow deformity [Unknown]
  - Tooth malformation [Unknown]
  - Speech disorder [Unknown]
  - Dysgraphia [Unknown]
  - Behaviour disorder [Unknown]
  - Colour blindness [Unknown]
  - Anodontia [Unknown]
  - Cognitive linguistic deficit [Unknown]
  - Developmental delay [Unknown]
  - Dysphagia [Unknown]
  - Impulsive behaviour [Unknown]
  - Emotional disorder [Unknown]
  - Myopia [Unknown]
  - Astigmatism [Unknown]
  - Visual impairment [Unknown]
  - Loss of personal independence in daily activities [Unknown]
  - Poor personal hygiene [Unknown]
  - Ear infection [Unknown]
  - Foetal exposure during pregnancy [Unknown]

NARRATIVE: CASE EVENT DATE: 20030501
